FAERS Safety Report 7052779-0 (Version None)
Quarter: 2010Q4

REPORT INFORMATION
  Report Type: 
  Country: None (occurrence: None)
  Receive Date: 20101014
  Receipt Date: 20101007
  Transmission Date: 20110411
  Serious: Yes (Hospitalization, Disabling)
  Sender: FDA-Public Use
  Company Number: 2010SP002792

PATIENT
  Age: 27 Year
  Sex: Female
  Weight: 72.5755 kg

DRUGS (3)
  1. NUVARING [Suspect]
     Indication: CONTRACEPTION
     Dates: start: 20060101, end: 20080501
  2. STEROIDS [Concomitant]
  3. MULTI-VITAMINS [Concomitant]

REACTIONS (39)
  - ABDOMINAL PAIN [None]
  - ACTIVITIES OF DAILY LIVING IMPAIRED [None]
  - ANGER [None]
  - ANXIETY [None]
  - BACK INJURY [None]
  - BLINDNESS TRANSIENT [None]
  - CEREBROVASCULAR ACCIDENT [None]
  - CLAUSTROPHOBIA [None]
  - COGNITIVE DISORDER [None]
  - DEHYDRATION [None]
  - DEPRESSED LEVEL OF CONSCIOUSNESS [None]
  - DEPRESSION [None]
  - DIPLOPIA [None]
  - DISORIENTATION [None]
  - EAR INFECTION [None]
  - ECONOMIC PROBLEM [None]
  - EMOTIONAL DISORDER [None]
  - FOLLICULITIS [None]
  - GENITAL DISCHARGE [None]
  - HYPERSENSITIVITY [None]
  - HYPOPHAGIA [None]
  - INTRACRANIAL VENOUS SINUS THROMBOSIS [None]
  - IRRITABILITY [None]
  - LOSS OF CONSCIOUSNESS [None]
  - MENTAL DISORDER [None]
  - MIGRAINE [None]
  - NAUSEA [None]
  - OVARIAN CYST [None]
  - PANIC ATTACK [None]
  - PROTEIN S DEFICIENCY [None]
  - ROAD TRAFFIC ACCIDENT [None]
  - SCOTOMA [None]
  - SLEEP DISORDER [None]
  - SUBARACHNOID HAEMORRHAGE [None]
  - SYNCOPE [None]
  - VISUAL FIELD DEFECT [None]
  - VOMITING [None]
  - VULVOVAGINAL DISCOMFORT [None]
  - WEIGHT INCREASED [None]
